FAERS Safety Report 20199304 (Version 1)
Quarter: 2021Q4

REPORT INFORMATION
  Report Type: Report from Study
  Country: PE (occurrence: PE)
  Receive Date: 20211217
  Receipt Date: 20211217
  Transmission Date: 20220304
  Serious: Yes (Hospitalization)
  Sender: FDA-Public Use
  Company Number: PE-NALPROPION PHARMACEUTICALS INC.-2021-014570

PATIENT

DRUGS (3)
  1. CONTRAVE [Suspect]
     Active Substance: BUPROPION HYDROCHLORIDE\NALTREXONE HYDROCHLORIDE
     Indication: Obesity
     Dosage: DOSE 8MG / 90MG (1 DF, 1 IN 1 D)
     Route: 048
     Dates: start: 20211125, end: 2021
  2. CONTRAVE [Suspect]
     Active Substance: BUPROPION HYDROCHLORIDE\NALTREXONE HYDROCHLORIDE
     Dosage: 2 DF (1 DF, 1 IN THE MORNING AND 1 AT NIGHT)
     Route: 048
     Dates: start: 2021, end: 202112
  3. FEMIGEN FORTE [Concomitant]
     Indication: Product used for unknown indication
     Dosage: UNK

REACTIONS (1)
  - Cholelithiasis [Recovered/Resolved]
